FAERS Safety Report 5255652-3 (Version None)
Quarter: 2007Q1

REPORT INFORMATION
  Report Type: 
  Country: None (occurrence: None)
  Receive Date: 20070305
  Receipt Date: 20070222
  Transmission Date: 20070707
  Serious: Yes (Death)
  Sender: FDA-Public Use
  Company Number: FR-PFIZER INC-2006078702

PATIENT
  Sex: Female

DRUGS (4)
  1. DOSTINEX [Suspect]
     Indication: PROLACTINOMA
     Route: 048
  2. ATORVASTATIN [Concomitant]
     Route: 048
  3. TROSPIUM CHLORIDE [Concomitant]
  4. RAMIPRIL [Concomitant]

REACTIONS (1)
  - ENTERITIS NECROTICANS [None]
